FAERS Safety Report 10501672 (Version 8)
Quarter: 2015Q2

REPORT INFORMATION
  Report Type: Spontaneous
  Country: US (occurrence: US)
  Receive Date: 20141007
  Receipt Date: 20150526
  Transmission Date: 20150821
  Serious: Yes (Death, Hospitalization)
  Sender: FDA-Public Use
  Company Number: US-ACTELION-A-NJ2014-100569

PATIENT
  Age: 72 Year
  Sex: Female

DRUGS (4)
  1. ADCIRCA [Concomitant]
     Active Substance: TADALAFIL
  2. OPSUMIT [Suspect]
     Active Substance: MACITENTAN
     Indication: PULMONARY ARTERIAL HYPERTENSION
     Dosage: 10 MG, QD
     Route: 048
     Dates: start: 20131212, end: 20150507
  3. OXYGEN. [Concomitant]
     Active Substance: OXYGEN
  4. VELETRI [Suspect]
     Active Substance: EPOPROSTENOL
     Indication: PULMONARY ARTERIAL HYPERTENSION
     Dosage: 45 NG/KG, PER MIN
     Route: 041
     Dates: start: 20120301, end: 20150507

REACTIONS (14)
  - Dyspnoea [Unknown]
  - Interstitial lung disease [Fatal]
  - Nausea [Recovered/Resolved]
  - Chest pain [Unknown]
  - Hypoxia [Fatal]
  - Diarrhoea [Recovered/Resolved]
  - Respiratory failure [Fatal]
  - Acute respiratory failure [Recovering/Resolving]
  - Pulmonary arterial hypertension [Unknown]
  - Vomiting [Recovered/Resolved]
  - Chronic obstructive pulmonary disease [Fatal]
  - Turner^s syndrome [Unknown]
  - Costochondritis [Unknown]
  - Fatigue [Recovering/Resolving]

NARRATIVE: CASE EVENT DATE: 20140523
